FAERS Safety Report 19043405 (Version 16)
Quarter: 2024Q4

REPORT INFORMATION
  Report Type: Report from Study
  Country: FR (occurrence: FR)
  Receive Date: 20210323
  Receipt Date: 20241004
  Transmission Date: 20250114
  Serious: Yes (Hospitalization, Other)
  Sender: TAKEDA
  Company Number: FR-SHIRE-FR201703986

PATIENT
  Age: 58 Year
  Sex: Female
  Weight: 58 kg

DRUGS (119)
  1. TEDUGLUTIDE [Suspect]
     Active Substance: TEDUGLUTIDE
     Indication: Short-bowel syndrome
     Dosage: 3 MILLIGRAM, QD
     Route: 042
     Dates: start: 20160404, end: 20160824
  2. TEDUGLUTIDE [Suspect]
     Active Substance: TEDUGLUTIDE
     Indication: Short-bowel syndrome
     Dosage: 3 MILLIGRAM, QD
     Route: 042
     Dates: start: 20160404, end: 20160824
  3. TEDUGLUTIDE [Suspect]
     Active Substance: TEDUGLUTIDE
     Indication: Short-bowel syndrome
     Dosage: 3 MILLIGRAM, QD
     Route: 042
     Dates: start: 20160404, end: 20160824
  4. TEDUGLUTIDE [Suspect]
     Active Substance: TEDUGLUTIDE
     Indication: Short-bowel syndrome
     Dosage: 3 MILLIGRAM, QD
     Route: 042
     Dates: start: 20160404, end: 20160824
  5. TEDUGLUTIDE [Suspect]
     Active Substance: TEDUGLUTIDE
     Dosage: 2.8 MILLIGRAM, QD
     Route: 042
     Dates: start: 20160825, end: 20160908
  6. TEDUGLUTIDE [Suspect]
     Active Substance: TEDUGLUTIDE
     Dosage: 2.8 MILLIGRAM, QD
     Route: 042
     Dates: start: 20160825, end: 20160908
  7. TEDUGLUTIDE [Suspect]
     Active Substance: TEDUGLUTIDE
     Dosage: 2.8 MILLIGRAM, QD
     Route: 042
     Dates: start: 20160825, end: 20160908
  8. TEDUGLUTIDE [Suspect]
     Active Substance: TEDUGLUTIDE
     Dosage: 2.8 MILLIGRAM, QD
     Route: 042
     Dates: start: 20160825, end: 20160908
  9. TEDUGLUTIDE [Suspect]
     Active Substance: TEDUGLUTIDE
     Dosage: 2.6 MILLIGRAM, QD
     Route: 042
     Dates: start: 20160909, end: 20160914
  10. TEDUGLUTIDE [Suspect]
     Active Substance: TEDUGLUTIDE
     Dosage: 2.6 MILLIGRAM, QD
     Route: 042
     Dates: start: 20160909, end: 20160914
  11. TEDUGLUTIDE [Suspect]
     Active Substance: TEDUGLUTIDE
     Dosage: 2.6 MILLIGRAM, QD
     Route: 042
     Dates: start: 20160909, end: 20160914
  12. TEDUGLUTIDE [Suspect]
     Active Substance: TEDUGLUTIDE
     Dosage: 2.6 MILLIGRAM, QD
     Route: 042
     Dates: start: 20160909, end: 20160914
  13. TEDUGLUTIDE [Suspect]
     Active Substance: TEDUGLUTIDE
     Dosage: 2.8 MILLIGRAM, QD
     Route: 042
     Dates: start: 20160915, end: 20161107
  14. TEDUGLUTIDE [Suspect]
     Active Substance: TEDUGLUTIDE
     Dosage: 2.8 MILLIGRAM, QD
     Route: 042
     Dates: start: 20160915, end: 20161107
  15. TEDUGLUTIDE [Suspect]
     Active Substance: TEDUGLUTIDE
     Dosage: 2.8 MILLIGRAM, QD
     Route: 042
     Dates: start: 20160915, end: 20161107
  16. TEDUGLUTIDE [Suspect]
     Active Substance: TEDUGLUTIDE
     Dosage: 2.8 MILLIGRAM, QD
     Route: 042
     Dates: start: 20160915, end: 20161107
  17. TEDUGLUTIDE [Suspect]
     Active Substance: TEDUGLUTIDE
     Dosage: 2.6 MILLIGRAM, QD
     Route: 042
     Dates: start: 20161108, end: 20161214
  18. TEDUGLUTIDE [Suspect]
     Active Substance: TEDUGLUTIDE
     Dosage: 2.6 MILLIGRAM, QD
     Route: 042
     Dates: start: 20161108, end: 20161214
  19. TEDUGLUTIDE [Suspect]
     Active Substance: TEDUGLUTIDE
     Dosage: 2.6 MILLIGRAM, QD
     Route: 042
     Dates: start: 20161108, end: 20161214
  20. TEDUGLUTIDE [Suspect]
     Active Substance: TEDUGLUTIDE
     Dosage: 2.6 MILLIGRAM, QD
     Route: 042
     Dates: start: 20161108, end: 20161214
  21. TEDUGLUTIDE [Suspect]
     Active Substance: TEDUGLUTIDE
     Dosage: 2.8 MILLIGRAM, QD
     Route: 042
     Dates: start: 20170214, end: 20170220
  22. TEDUGLUTIDE [Suspect]
     Active Substance: TEDUGLUTIDE
     Dosage: 2.8 MILLIGRAM, QD
     Route: 042
     Dates: start: 20170214, end: 20170220
  23. TEDUGLUTIDE [Suspect]
     Active Substance: TEDUGLUTIDE
     Dosage: 2.8 MILLIGRAM, QD
     Route: 042
     Dates: start: 20170214, end: 20170220
  24. TEDUGLUTIDE [Suspect]
     Active Substance: TEDUGLUTIDE
     Dosage: 2.8 MILLIGRAM, QD
     Route: 042
     Dates: start: 20170214, end: 20170220
  25. TEDUGLUTIDE [Suspect]
     Active Substance: TEDUGLUTIDE
     Dosage: 2.6 MILLIGRAM, QD
     Route: 042
     Dates: start: 20170303, end: 20170411
  26. TEDUGLUTIDE [Suspect]
     Active Substance: TEDUGLUTIDE
     Dosage: 2.6 MILLIGRAM, QD
     Route: 042
     Dates: start: 20170303, end: 20170411
  27. TEDUGLUTIDE [Suspect]
     Active Substance: TEDUGLUTIDE
     Dosage: 2.6 MILLIGRAM, QD
     Route: 042
     Dates: start: 20170303, end: 20170411
  28. TEDUGLUTIDE [Suspect]
     Active Substance: TEDUGLUTIDE
     Dosage: 2.6 MILLIGRAM, QD
     Route: 042
     Dates: start: 20170303, end: 20170411
  29. TEDUGLUTIDE [Suspect]
     Active Substance: TEDUGLUTIDE
     Dosage: 2.8 MILLIGRAM, QD
     Route: 042
     Dates: start: 20170412, end: 20181129
  30. TEDUGLUTIDE [Suspect]
     Active Substance: TEDUGLUTIDE
     Dosage: 2.8 MILLIGRAM, QD
     Route: 042
     Dates: start: 20170412, end: 20181129
  31. TEDUGLUTIDE [Suspect]
     Active Substance: TEDUGLUTIDE
     Dosage: 2.8 MILLIGRAM, QD
     Route: 042
     Dates: start: 20170412, end: 20181129
  32. TEDUGLUTIDE [Suspect]
     Active Substance: TEDUGLUTIDE
     Dosage: 2.8 MILLIGRAM, QD
     Route: 042
     Dates: start: 20170412, end: 20181129
  33. TEDUGLUTIDE [Suspect]
     Active Substance: TEDUGLUTIDE
     Dosage: 2.4 MILLIGRAM, QD
     Route: 042
     Dates: start: 20181130
  34. TEDUGLUTIDE [Suspect]
     Active Substance: TEDUGLUTIDE
     Dosage: 2.4 MILLIGRAM, QD
     Route: 042
     Dates: start: 20181130
  35. TEDUGLUTIDE [Suspect]
     Active Substance: TEDUGLUTIDE
     Dosage: 2.4 MILLIGRAM, QD
     Route: 042
     Dates: start: 20181130
  36. TEDUGLUTIDE [Suspect]
     Active Substance: TEDUGLUTIDE
     Dosage: 2.4 MILLIGRAM, QD
     Route: 042
     Dates: start: 20181130
  37. POTASSIUM [Concomitant]
     Active Substance: POTASSIUM
     Indication: Hypovitaminosis
     Dosage: 1200 MILLIGRAM, TID
     Route: 048
     Dates: start: 201612
  38. LOPERAMIDE [Concomitant]
     Active Substance: LOPERAMIDE
     Indication: Prophylaxis against diarrhoea
     Dosage: 6 MILLIGRAM, TID
     Route: 048
     Dates: start: 201612
  39. WARFARIN SODIUM [Concomitant]
     Active Substance: WARFARIN SODIUM
     Indication: Anticoagulant therapy
     Dosage: 1 MILLIGRAM, QD
     Route: 048
     Dates: start: 201611
  40. WARFARIN SODIUM [Concomitant]
     Active Substance: WARFARIN SODIUM
     Indication: Prophylaxis
     Dosage: 1 MILLIGRAM, QD
     Route: 048
     Dates: start: 201612
  41. WARFARIN SODIUM [Concomitant]
     Active Substance: WARFARIN SODIUM
     Indication: Jugular vein thrombosis
     Dosage: 3 MILLIGRAM, QD
     Route: 048
     Dates: start: 201611, end: 201709
  42. WARFARIN SODIUM [Concomitant]
     Active Substance: WARFARIN SODIUM
     Dosage: 2 MILLIGRAM, QD
     Route: 048
     Dates: start: 201611
  43. WARFARIN SODIUM [Concomitant]
     Active Substance: WARFARIN SODIUM
     Dosage: 2 MILLIGRAM, QD
     Route: 048
     Dates: start: 20170307, end: 201705
  44. WARFARIN SODIUM [Concomitant]
     Active Substance: WARFARIN SODIUM
     Dosage: 3.60 MILLIGRAM, QD
     Route: 048
     Dates: start: 201609, end: 201611
  45. WARFARIN SODIUM [Concomitant]
     Active Substance: WARFARIN SODIUM
     Dosage: 3 MILLIGRAM, QD
     Route: 048
     Dates: start: 201611, end: 201702
  46. WARFARIN SODIUM [Concomitant]
     Active Substance: WARFARIN SODIUM
     Dosage: 2 MILLIGRAM, QD
     Route: 048
     Dates: start: 20180413, end: 20191009
  47. MAGNESIUM SULFATE [Concomitant]
     Active Substance: MAGNESIUM SULFATE
     Indication: Short-bowel syndrome
     Dosage: 16000 MILLIGRAM
     Route: 042
     Dates: start: 201911
  48. MAGNESIUM SULFATE [Concomitant]
     Active Substance: MAGNESIUM SULFATE
     Dosage: 15000 MILLIGRAM
     Route: 042
     Dates: start: 201911
  49. CALCIUM CARBONATE [Concomitant]
     Active Substance: CALCIUM CARBONATE
     Indication: Short-bowel syndrome
     Dosage: 1000 MILLIGRAM, QD
     Route: 048
     Dates: start: 20160409
  50. CALCIUM CARBONATE [Concomitant]
     Active Substance: CALCIUM CARBONATE
     Indication: Supplementation therapy
     Dosage: 600 MILLIGRAM, TID
     Route: 048
     Dates: start: 20190726
  51. CALCIUM CARBONATE [Concomitant]
     Active Substance: CALCIUM CARBONATE
     Dosage: 500 MILLIGRAM, QD
     Route: 048
     Dates: start: 20200214
  52. CHOLECALCIFEROL [Concomitant]
     Active Substance: CHOLECALCIFEROL
     Indication: Short-bowel syndrome
     Dosage: 100000 INTERNATIONAL UNIT, MONTHLY
     Route: 048
     Dates: start: 20200214
  53. WARFARIN [Concomitant]
     Active Substance: WARFARIN
     Indication: Thrombosis prophylaxis
     Dosage: 1 MILLIGRAM, QD
     Route: 048
     Dates: start: 20191009, end: 20191026
  54. WARFARIN [Concomitant]
     Active Substance: WARFARIN
     Indication: Peripheral ischaemia
     Dosage: 2 MILLIGRAM, QD
     Route: 048
     Dates: start: 20191121
  55. WARFARIN [Concomitant]
     Active Substance: WARFARIN
     Dosage: 1.5 MILLIGRAM, QD
     Route: 048
     Dates: start: 20191125
  56. WARFARIN [Concomitant]
     Active Substance: WARFARIN
     Dosage: 1.6 MILLIGRAM, QD
     Route: 048
     Dates: start: 20191126
  57. LOVENOX [Concomitant]
     Active Substance: ENOXAPARIN SODIUM
     Indication: Device related thrombosis
     Dosage: 0.40 MILLILITER
     Route: 058
     Dates: start: 20170224, end: 20170307
  58. LOVENOX [Concomitant]
     Active Substance: ENOXAPARIN SODIUM
     Indication: Superior vena cava syndrome
     Dosage: 6000 INTERNATIONAL UNIT, BID
     Route: 058
     Dates: start: 201710, end: 2018
  59. LOVENOX [Concomitant]
     Active Substance: ENOXAPARIN SODIUM
     Indication: Jugular vein thrombosis
     Dosage: 0.6 MILLILITER
     Route: 058
     Dates: start: 20170604, end: 20170731
  60. LOVENOX [Concomitant]
     Active Substance: ENOXAPARIN SODIUM
     Dosage: 0.6 MILLILITER
     Route: 058
     Dates: start: 20171013, end: 2018
  61. TRAMADOL HYDROCHLORIDE [Concomitant]
     Active Substance: TRAMADOL HYDROCHLORIDE
     Indication: Back pain
     Dosage: 100 MILLIGRAM
     Route: 048
     Dates: start: 20170318, end: 201705
  62. Calcit [Concomitant]
     Route: 065
  63. NICORETTE [Concomitant]
     Active Substance: NICOTINE
     Route: 065
  64. SODIUM BENZOATE [Concomitant]
     Active Substance: SODIUM BENZOATE
     Indication: Supplementation therapy
     Dosage: 260 MILLIGRAM
     Route: 048
     Dates: start: 20171202
  65. CITRIC ACID [Concomitant]
     Active Substance: CITRIC ACID MONOHYDRATE
     Route: 065
  66. SACCHARIN SODIUM [Concomitant]
     Active Substance: SACCHARIN SODIUM DIHYDRATE
     Route: 065
  67. IMODIUM [Concomitant]
     Active Substance: LOPERAMIDE HYDROCHLORIDE
     Indication: Short-bowel syndrome
     Dosage: 2 MILLIGRAM
     Route: 048
     Dates: start: 2006
  68. ESOMEPRAZOLE [Concomitant]
     Active Substance: ESOMEPRAZOLE
     Indication: Short-bowel syndrome
     Dosage: 20 MILLIGRAM, QD
     Route: 048
     Dates: start: 2006, end: 2019
  69. FERROUS SULFATE [Concomitant]
     Active Substance: FERROUS SULFATE
     Indication: Supplementation therapy
     Dosage: 80 MILLIGRAM, QD
     Route: 048
     Dates: end: 20161021
  70. FERROUS SULFATE [Concomitant]
     Active Substance: FERROUS SULFATE
     Indication: Anaemia
     Dosage: 80 MILLIGRAM, QD
     Route: 048
     Dates: start: 201611, end: 201703
  71. VITAMIN B12 [Concomitant]
     Active Substance: CYANOCOBALAMIN
     Indication: Supplementation therapy
     Dosage: 1000 MILLIGRAM, 1/WEEK
     Route: 042
     Dates: start: 2006
  72. VITAMIN B12 [Concomitant]
     Active Substance: CYANOCOBALAMIN
     Dosage: 1 DOSAGE FORM, 1/WEEK
     Route: 048
     Dates: start: 20160413
  73. POTASSIUM CHLORIDE [Concomitant]
     Active Substance: POTASSIUM CHLORIDE
     Indication: Supplementation therapy
     Dosage: 600 MILLIGRAM, BID
     Route: 048
     Dates: end: 201612
  74. POTASSIUM CHLORIDE [Concomitant]
     Active Substance: POTASSIUM CHLORIDE
     Dosage: 600 MILLIGRAM, TID
     Route: 048
     Dates: start: 201705
  75. ESCITALOPRAM OXALATE [Concomitant]
     Active Substance: ESCITALOPRAM OXALATE
     Indication: Depression
     Dosage: 10 MILLIGRAM, QD
     Route: 048
  76. CALCIUM [Concomitant]
     Active Substance: CALCIUM
     Indication: Supplementation therapy
     Dosage: 1 GRAM, QD
     Route: 048
     Dates: end: 201612
  77. SODIUM BICARBONATE [Concomitant]
     Active Substance: SODIUM BICARBONATE
     Indication: Supplementation therapy
     Dosage: 600 MILLIGRAM
     Route: 048
     Dates: end: 201612
  78. SODIUM BICARBONATE [Concomitant]
     Active Substance: SODIUM BICARBONATE
     Indication: Short-bowel syndrome
     Dosage: 600 MILLIGRAM, BID
     Route: 048
     Dates: start: 20190726
  79. SODIUM BICARBONATE [Concomitant]
     Active Substance: SODIUM BICARBONATE
     Dosage: 1000 MILLIGRAM, TID
     Route: 048
     Dates: start: 20191024
  80. TAUROLIDINE CITRATE [Concomitant]
     Indication: Thrombosis prophylaxis
     Dosage: 2 MILLILITER
     Route: 042
     Dates: end: 20160630
  81. ALBUMIN HUMAN [Concomitant]
     Active Substance: ALBUMIN HUMAN
     Indication: Hypoalbuminaemia
     Dosage: 40 GRAM, QD
     Route: 042
     Dates: start: 20160907, end: 20160907
  82. CHOLECALCIFEROL [Concomitant]
     Active Substance: CHOLECALCIFEROL
     Indication: Supplementation therapy
     Dosage: 100000 INTERNATIONAL UNIT
     Route: 048
  83. MINERALS\VITAMINS [Concomitant]
     Active Substance: MINERALS\VITAMINS
     Indication: Supplementation therapy
     Dosage: 1 DOSAGE FORM, BID
     Route: 048
     Dates: end: 201612
  84. MINERALS\VITAMINS [Concomitant]
     Active Substance: MINERALS\VITAMINS
     Dosage: 10 MILLIGRAM, BID
     Route: 048
     Dates: start: 20190222, end: 20190726
  85. Cacit [Concomitant]
     Indication: Supplementation therapy
     Dosage: 600 MILLIGRAM
     Route: 048
     Dates: end: 20171015
  86. Cacit [Concomitant]
     Dosage: 600 MILLIGRAM
     Route: 048
     Dates: start: 20180221
  87. CALCIUM PHOSPHATE, DIBASIC, ANHYDROUS\MAGNESIUM GLYCEROPHOSPHATE\PHOSP [Concomitant]
     Active Substance: CALCIUM PHOSPHATE, DIBASIC, ANHYDROUS\MAGNESIUM GLYCEROPHOSPHATE\PHOSPHORIC ACID\SODIUM PHOSPHATE, D
     Indication: Supplementation therapy
     Dosage: 16 GTT DROPS, BID
     Route: 048
  88. CALCIUM PHOSPHATE, DIBASIC, ANHYDROUS\MAGNESIUM GLYCEROPHOSPHATE\PHOSP [Concomitant]
     Active Substance: CALCIUM PHOSPHATE, DIBASIC, ANHYDROUS\MAGNESIUM GLYCEROPHOSPHATE\PHOSPHORIC ACID\SODIUM PHOSPHATE, D
     Indication: Short-bowel syndrome
     Dosage: 26 GTT DROPS, TID
     Route: 048
     Dates: start: 20191116, end: 20191126
  89. .ALPHA.-TOCOPHEROL ACETATE, D- [Concomitant]
     Active Substance: .ALPHA.-TOCOPHEROL ACETATE, D-
     Indication: Supplementation therapy
     Dosage: 600 MILLIGRAM, QD
     Route: 048
     Dates: start: 201511
  90. FUROSEMIDE [Concomitant]
     Active Substance: FUROSEMIDE
     Indication: Oedema peripheral
     Dosage: 80 MILLIGRAM, QD
     Route: 048
     Dates: start: 20160907, end: 20161212
  91. FUROSEMIDE [Concomitant]
     Active Substance: FUROSEMIDE
     Dosage: 80 MILLIGRAM, QD
     Route: 048
     Dates: start: 20161117, end: 20161212
  92. PYRIDOXINE [Concomitant]
     Active Substance: PYRIDOXINE
     Indication: Supplementation therapy
     Dosage: 260 MILLIGRAM, QD
     Route: 048
     Dates: start: 20160922, end: 20161117
  93. THIAMINE HYDROCHLORIDE [Concomitant]
     Active Substance: THIAMINE HYDROCHLORIDE
     Indication: Supplementation therapy
     Dosage: 260 MILLIGRAM, QD
     Route: 048
     Dates: start: 20160922, end: 20161117
  94. MAGNESIUM [Concomitant]
     Active Substance: MAGNESIUM
     Indication: Hypomagnesaemia
     Dosage: UNK
     Route: 042
     Dates: start: 201609, end: 201609
  95. MAGNESIUM [Concomitant]
     Active Substance: MAGNESIUM
     Dosage: 160 MILLIGRAM, QID
     Route: 048
     Dates: start: 20181130, end: 20190222
  96. DIPROSONE [Concomitant]
     Active Substance: BETAMETHASONE DIPROPIONATE
     Indication: Eczema
     Dosage: UNK UNK, QD
     Route: 061
     Dates: start: 20161117, end: 2017
  97. CEFTRIAXONE [Concomitant]
     Active Substance: CEFTRIAXONE
     Indication: Pneumonia
     Dosage: 1 GRAM, QD
     Route: 048
     Dates: start: 20161229, end: 20170106
  98. AMOXICILLIN [Concomitant]
     Active Substance: AMOXICILLIN
     Indication: Infection
     Dosage: 2 GRAM
     Route: 048
     Dates: start: 20170217, end: 20170217
  99. FLAGYL [Concomitant]
     Active Substance: METRONIDAZOLE\METRONIDAZOLE HYDROCHLORIDE
     Indication: Infection
     Dosage: 600 MILLIGRAM, TID
     Route: 048
     Dates: start: 20170222, end: 20170225
  100. GENTAMICIN [Concomitant]
     Active Substance: GENTAMICIN
     Indication: Infection
     Dosage: 260 MILLIGRAM, QD
     Route: 048
     Dates: start: 20170225
  101. VANCOMYCIN [Concomitant]
     Active Substance: VANCOMYCIN
     Indication: Infection
     Dosage: 1.6 GRAM, QD
     Route: 042
     Dates: start: 20170224, end: 201709
  102. OFLOXACIN [Concomitant]
     Active Substance: OFLOXACIN
     Indication: Sepsis
     Dosage: 200 MILLIGRAM, TID
     Route: 048
     Dates: start: 20170224, end: 20170430
  103. BACTRIM [Concomitant]
     Active Substance: SULFAMETHOXAZOLE\TRIMETHOPRIM
     Indication: Sepsis
     Dosage: 800 MILLIGRAM, QD
     Route: 048
     Dates: start: 20170224, end: 20170430
  104. NEFOPAM [Concomitant]
     Active Substance: NEFOPAM
     Indication: Back pain
     Dosage: 1 DOSAGE FORM
     Route: 042
     Dates: start: 20170217, end: 20170318
  105. NEFOPAM [Concomitant]
     Active Substance: NEFOPAM
     Indication: Pain prophylaxis
     Dosage: 20 MILLIGRAM
     Route: 048
     Dates: start: 20191027, end: 20191121
  106. INNOHEP [Concomitant]
     Active Substance: TINZAPARIN SODIUM
     Indication: Vena cava thrombosis
     Dosage: 10000 INTERNATIONAL UNIT, QD
     Route: 058
     Dates: start: 201705, end: 20170704
  107. CALCIUM BICARBONATE [Concomitant]
     Active Substance: CALCIUM BICARBONATE
     Indication: Supplementation therapy
     Dosage: 600 MILLIGRAM
     Route: 048
     Dates: start: 20160409, end: 20170329
  108. LEUCOVORIN CALCIUM [Concomitant]
     Active Substance: LEUCOVORIN CALCIUM
     Indication: Supplementation therapy
     Dosage: 26 MILLIGRAM, QD
     Route: 048
     Dates: start: 20170607, end: 20170906
  109. EUPANTOL [Concomitant]
     Active Substance: PANTOPRAZOLE SODIUM
     Indication: Short-bowel syndrome
     Dosage: 20 MILLIGRAM, QD
     Route: 048
     Dates: start: 20171015, end: 20180221
  110. PANTOPRAZOLE SODIUM [Concomitant]
     Active Substance: PANTOPRAZOLE SODIUM
     Indication: Prophylaxis
     Dosage: 20 MILLIGRAM, QD
     Route: 048
     Dates: start: 20191009
  111. THIAMINE [Concomitant]
     Active Substance: THIAMINE
     Indication: Short-bowel syndrome
     Dosage: 260 MILLIGRAM, QD
     Route: 048
     Dates: start: 20191016
  112. PYRIDOXINE [Concomitant]
     Active Substance: PYRIDOXINE
     Indication: Short-bowel syndrome
     Dosage: 260 MILLIGRAM, TID
     Route: 048
     Dates: start: 20191009
  113. POTASSIUM CHLORIDE [Concomitant]
     Active Substance: POTASSIUM CHLORIDE
     Indication: Short-bowel syndrome
     Dosage: 600 MILLIGRAM, TID
     Route: 048
     Dates: start: 20191021
  114. ASPIRIN [Concomitant]
     Active Substance: ASPIRIN
     Indication: Thrombosis prophylaxis
     Dosage: 76 MILLIGRAM, QD
     Route: 048
     Dates: start: 20191026, end: 20191124
  115. PHOCYTAN [Concomitant]
     Active Substance: .ALPHA.-GLUCOSE-1-PHOSPHATE DISODIUM TETRAHYDRATE
     Indication: Short-bowel syndrome
     Dosage: 6.6 MILLIGRAM
     Route: 042
     Dates: start: 20191104
  116. TRAMADOL [Concomitant]
     Active Substance: TRAMADOL
     Indication: Pain prophylaxis
     Dosage: 60 MILLIGRAM
     Route: 048
     Dates: start: 20191024
  117. ACETAMINOPHEN [Concomitant]
     Active Substance: ACETAMINOPHEN
     Indication: Pain prophylaxis
     Dosage: 600 MILLIGRAM, TID
     Route: 048
     Dates: start: 20191009
  118. MAGNESIUM CITRATE [Concomitant]
     Active Substance: MAGNESIUM CITRATE
     Indication: Short-bowel syndrome
     Dosage: 200 MILLIGRAM, TID
     Route: 048
     Dates: start: 20191017, end: 20191121
  119. CALCIUM GLUCONATE [Concomitant]
     Active Substance: CALCIUM GLUCONATE
     Indication: Short-bowel syndrome
     Dosage: 16000 MILLIGRAM
     Route: 042
     Dates: start: 201911

REACTIONS (14)
  - Vascular device infection [Recovered/Resolved]
  - Pulmonary embolism [Recovered/Resolved]
  - Spondylitis [Recovered/Resolved]
  - Device related thrombosis [Recovered/Resolved]
  - Sepsis [Recovered/Resolved]
  - Back pain [Recovered/Resolved]
  - Intervertebral discitis [Recovered/Resolved]
  - Spinal cord infection [Recovered/Resolved]
  - Arthritis [Recovered/Resolved]
  - Paraesthesia [Recovered/Resolved]
  - Hyponatraemia [Recovered/Resolved]
  - Pain in extremity [Recovered/Resolved]
  - Eczema [Recovered/Resolved]
  - Dry skin [Recovered/Resolved]

NARRATIVE: CASE EVENT DATE: 20170201
